FAERS Safety Report 10692936 (Version 2)
Quarter: 2015Q1

REPORT INFORMATION
  Report Type: Spontaneous
  Country: JP (occurrence: JP)
  Receive Date: 20150106
  Receipt Date: 20150311
  Transmission Date: 20150720
  Serious: Yes (Hospitalization, Other)
  Sender: FDA-Public Use
  Company Number: JP-JNJFOC-20141220218

PATIENT
  Age: 37 Year
  Sex: Male
  Weight: 53.4 kg

DRUGS (1)
  1. INFLIXIMAB, RECOMBINANT [Suspect]
     Active Substance: INFLIXIMAB
     Indication: CROHN^S DISEASE
     Route: 042

REACTIONS (4)
  - Pulmonary tuberculosis [Recovering/Resolving]
  - Postoperative ileus [Unknown]
  - Sepsis [Unknown]
  - Intestinal resection [Unknown]
